FAERS Safety Report 10974181 (Version 1)
Quarter: 2015Q2

REPORT INFORMATION
  Report Type: Spontaneous
  Country: US (occurrence: US)
  Receive Date: 20150401
  Receipt Date: 20150401
  Transmission Date: 20150821
  Serious: Yes (Death, Hospitalization)
  Sender: FDA-Public Use
  Company Number: US-CIPLA LTD.-2015US02033

PATIENT

DRUGS (9)
  1. METOCLOPRAMIDE. [Concomitant]
     Active Substance: METOCLOPRAMIDE
     Indication: HICCUPS
     Dosage: 10 MG ONCE/DAY AS NEEDED FOR HICCUP
  2. DONEPEZIL [Suspect]
     Active Substance: DONEPEZIL
     Dosage: 15 MG AT BEDTIME
  3. DONEPEZIL [Suspect]
     Active Substance: DONEPEZIL
     Indication: PRODUCT USED FOR UNKNOWN INDICATION
     Dosage: 5 MG AT BEDTIME
     Dates: start: 2011
  4. ROPINIROLE. [Concomitant]
     Active Substance: ROPINIROLE
     Dosage: 1 MG EVERY NIGHT
  5. AMITRIPTYLINE [Concomitant]
     Active Substance: AMITRIPTYLINE
     Dosage: 25 MG ONCE/NIGHT
  6. FLUTICASONE NASAL SPRAY [Concomitant]
     Active Substance: FLUTICASONE\FLUTICASONE PROPIONATE
     Dosage: 50-LG SPRAY IN BOTH NOSTRILS ONCE/DAY
  7. FUROSEMIDE. [Concomitant]
     Active Substance: FUROSEMIDE
     Dosage: 20 MG ONCE/DAY AS NEEDED FOR EDEMA
  8. DISSECTED THYROID [Concomitant]
     Dosage: 1 GRAIN EVERY MORNING
  9. OMEPRAZOLE. [Concomitant]
     Active Substance: OMEPRAZOLE
     Indication: HICCUPS
     Dosage: 20 MG TWICE/DAY

REACTIONS (10)
  - Urosepsis [Recovered/Resolved]
  - Aggression [Unknown]
  - Pleural effusion [Unknown]
  - Impulsive behaviour [Unknown]
  - Acute kidney injury [Unknown]
  - Lumbar vertebral fracture [Unknown]
  - Death [Fatal]
  - Interstitial lung disease [Unknown]
  - Hiccups [Unknown]
  - Thoracic vertebral fracture [Unknown]

NARRATIVE: CASE EVENT DATE: 201310
